FAERS Safety Report 5750708-0 (Version None)
Quarter: 2008Q2

REPORT INFORMATION
  Report Type: 
  Country: None (occurrence: None)
  Receive Date: 20080528
  Receipt Date: 20080515
  Transmission Date: 20081010
  Serious: Yes (Hospitalization, Other)
  Sender: FDA-Public Use
  Company Number: US-BAYER-200823642NA

PATIENT
  Age: 7 Week
  Weight: 4.5 kg

DRUGS (2)
  1. MAGNEVIST [Suspect]
     Indication: NUCLEAR MAGNETIC RESONANCE IMAGING BRAIN
     Dosage: TOTAL DAILY DOSE: 9 ML
     Dates: start: 20080501, end: 20080501
  2. ANESTHESIA [Concomitant]

REACTIONS (1)
  - NO ADVERSE EVENT [None]
